FAERS Safety Report 4747830-4 (Version None)
Quarter: 2005Q3

REPORT INFORMATION
  Report Type: 
  Country: None (occurrence: None)
  Receive Date: 20050816
  Receipt Date: 20050804
  Transmission Date: 20060218
  Serious: Yes (Life-Threatening, Hospitalization, Other)
  Sender: FDA-Public Use
  Company Number: 2005-07-2118

PATIENT
  Sex: Male

DRUGS (3)
  1. CLARITIN [Suspect]
     Indication: SEASONAL ALLERGY
     Dosage: 1 TAB ORAL
     Route: 048
     Dates: start: 20020831, end: 20020831
  2. CLARITIN [Suspect]
     Indication: SEASONAL ALLERGY
     Dosage: SEE IMAGE
     Route: 048
     Dates: end: 20020830
  3. CLARITIN [Suspect]
     Indication: SEASONAL ALLERGY
     Dosage: SEE IMAGE
     Route: 048
     Dates: start: 20020831, end: 20020831

REACTIONS (9)
  - AFFECTIVE DISORDER [None]
  - AGITATION [None]
  - AMNESIA [None]
  - CONVULSION [None]
  - DEPRESSION [None]
  - DISTURBANCE IN ATTENTION [None]
  - DRUG INEFFECTIVE [None]
  - IMPAIRED WORK ABILITY [None]
  - INSOMNIA [None]
